FAERS Safety Report 8450679 (Version 6)
Quarter: 2013Q2

REPORT INFORMATION
  Report Type: Spontaneous
  Country: US (occurrence: US)
  Receive Date: 20120309
  Receipt Date: 20130514
  Transmission Date: 20140414
  Serious: Yes (Death)
  Sender: FDA-Public Use
  Company Number: US-SANOFI-AVENTIS-2012SA014000

PATIENT
  Age: 56 Year
  Sex: Male
  Weight: 76 kg

DRUGS (10)
  1. AMBIEN CR [Suspect]
     Indication: INSOMNIA
     Route: 048
     Dates: start: 20100113
  2. AMBIEN [Suspect]
     Indication: INSOMNIA
     Route: 048
     Dates: start: 20060402
  3. AMBIEN [Suspect]
     Indication: INSOMNIA
     Route: 048
     Dates: start: 20100304
  4. BUPROPION [Suspect]
     Route: 065
  5. CITALOPRAM [Suspect]
     Route: 065
  6. LEXAPRO [Concomitant]
     Indication: DEPRESSION
     Route: 065
  7. XANAX [Concomitant]
     Indication: ANXIETY
     Route: 065
     Dates: start: 20100203
  8. VITAMINS [Concomitant]
  9. ASPIRIN [Concomitant]
  10. IBUPROFEN [Concomitant]

REACTIONS (10)
  - Completed suicide [Fatal]
  - Gun shot wound [Fatal]
  - Overdose [Fatal]
  - Drug level above therapeutic [Fatal]
  - Depression [Fatal]
  - Agitation [Unknown]
  - Anxiety [Unknown]
  - Insomnia [Unknown]
  - Stress [Unknown]
  - Treatment noncompliance [Unknown]
